FAERS Safety Report 5210961-9 (Version None)
Quarter: 2007Q1

REPORT INFORMATION
  Report Type: 
  Country: None (occurrence: None)
  Receive Date: 20070117
  Receipt Date: 20070105
  Transmission Date: 20070707
  Serious: Yes (Hospitalization)
  Sender: FDA-Public Use
  Company Number: FR-PFIZER INC-2007002716

PATIENT
  Sex: Male
  Weight: 80 kg

DRUGS (4)
  1. AZADOSE [Suspect]
     Indication: OPPORTUNISTIC INFECTION PROPHYLAXIS
     Route: 048
     Dates: start: 20061110, end: 20061110
  2. FOSAMPRENAVIR [Suspect]
     Indication: HIV INFECTION
     Route: 048
     Dates: start: 20061109, end: 20061116
  3. TRUVADA [Suspect]
     Indication: HIV INFECTION
     Dosage: TEXT:1 DF-FREQ:INTERVAL: EVERY DAY
     Route: 048
     Dates: start: 20061109, end: 20061116
  4. RITONAVIR [Concomitant]
     Route: 048
     Dates: start: 20061109, end: 20061116

REACTIONS (5)
  - ALANINE AMINOTRANSFERASE INCREASED [None]
  - ASPARTATE AMINOTRANSFERASE INCREASED [None]
  - HYPERSENSITIVITY [None]
  - PYREXIA [None]
  - RASH [None]
